FAERS Safety Report 13865143 (Version 1)
Quarter: 2017Q3

REPORT INFORMATION
  Report Type: Report from Study
  Country: US (occurrence: US)
  Receive Date: 20170814
  Receipt Date: 20170814
  Transmission Date: 20171127
  Serious: No
  Sender: FDA-Public Use
  Company Number: US-AEGERION PHARMACEUTICAL, INC-AEGR000822

PATIENT
  Age: 35 Year
  Sex: Female
  Weight: 74.83 kg

DRUGS (10)
  1. QSYMIA [Suspect]
     Active Substance: PHENTERMINE HYDROCHLORIDE\TOPIRAMATE
     Indication: PRODUCT USED FOR UNKNOWN INDICATION
  2. CRESTOR [Concomitant]
     Active Substance: ROSUVASTATIN CALCIUM
     Indication: HYPERLIPIDAEMIA
     Dosage: 20 MG, QD
     Route: 048
     Dates: start: 20120824, end: 20131115
  3. VITAMIN E [Concomitant]
     Active Substance: .ALPHA.-TOCOPHEROL
     Indication: TYPE IIA HYPERLIPIDAEMIA
     Dosage: 200 UNITS, QD
     Route: 048
     Dates: start: 20130416
  4. CRESTOR [Concomitant]
     Active Substance: ROSUVASTATIN CALCIUM
     Dosage: 20 MG, QHS = ONCE AT NIGHT
     Route: 048
     Dates: start: 20131116
  5. DHEA [Concomitant]
     Active Substance: PRASTERONE
     Indication: TYPE IIA HYPERLIPIDAEMIA
     Dosage: 3-6-9 MG, QHS = ONCE AT NIGHT
     Route: 048
     Dates: start: 20130416
  6. ENDUR-ACIN [Concomitant]
     Indication: HYPERLIPIDAEMIA
     Dosage: 500 MG,
     Route: 048
     Dates: start: 20130308
  7. ASPIRIN. [Concomitant]
     Active Substance: ASPIRIN
     Indication: PROPHYLAXIS
     Dosage: 81 MG, QD
     Route: 048
     Dates: start: 20120824
  8. JUXTAPID [Suspect]
     Active Substance: LOMITAPIDE MESYLATE
     Dosage: 5 MG, QOD
     Route: 048
     Dates: start: 20140604, end: 20140721
  9. ZETIA [Suspect]
     Active Substance: EZETIMIBE
     Indication: HYPERLIPIDAEMIA
     Dosage: 10 MG, ONCE AT NIGHT
     Route: 048
     Dates: start: 20130308
  10. JUXTAPID [Suspect]
     Active Substance: LOMITAPIDE MESYLATE
     Indication: TYPE IIA HYPERLIPIDAEMIA
     Dosage: 5 MG, QD
     Route: 048
     Dates: start: 20130416, end: 20140603

REACTIONS (3)
  - Rash [Recovered/Resolved]
  - Inappropriate schedule of drug administration [Recovered/Resolved]
  - Therapy cessation [Not Recovered/Not Resolved]

NARRATIVE: CASE EVENT DATE: 201304
